FAERS Safety Report 20507636 (Version 6)
Quarter: 2022Q2

REPORT INFORMATION
  Report Type: Report from Study
  Country: US (occurrence: US)
  Receive Date: 20220223
  Receipt Date: 20220506
  Transmission Date: 20220721
  Serious: Yes (Hospitalization, Other)
  Sender: FDA-Public Use
  Company Number: NVSC2022US041353

PATIENT
  Sex: Female

DRUGS (1)
  1. PIQRAY [Suspect]
     Active Substance: ALPELISIB
     Indication: Breast cancer
     Dosage: 300 MG, QD
     Route: 048
     Dates: start: 20220221

REACTIONS (5)
  - Loss of consciousness [Unknown]
  - Renal failure [Not Recovered/Not Resolved]
  - Memory impairment [Recovering/Resolving]
  - Skin ulcer [Recovering/Resolving]
  - Blood glucose increased [Not Recovered/Not Resolved]
